FAERS Safety Report 9911663 (Version 1)
Quarter: 2014Q1

REPORT INFORMATION
  Report Type: Spontaneous
  Country: IT (occurrence: IT)
  Receive Date: 20140219
  Receipt Date: 20140219
  Transmission Date: 20141002
  Serious: Yes (Hospitalization)
  Sender: FDA-Public Use
  Company Number: IT-SA-2014SA016088

PATIENT
  Age: 58 Year
  Sex: Male

DRUGS (13)
  1. LASIX [Suspect]
     Indication: HYPERTENSION
     Route: 048
     Dates: start: 20130422, end: 20131004
  2. LANTUS [Suspect]
     Indication: DIABETES MELLITUS
     Dosage: LESS THAN 100 DAILY
     Route: 058
     Dates: start: 20130101, end: 20131004
  3. NOVORAPID [Suspect]
     Indication: DIABETES MELLITUS
     Dosage: 29 IU LESS THAN 100 DAILY
     Route: 058
     Dates: start: 20130101, end: 20131004
  4. PEPTAZOL [Concomitant]
  5. TAPAZOLE [Concomitant]
  6. TICLOPIDINE [Concomitant]
  7. ADALAT [Concomitant]
  8. UNIPRIL [Concomitant]
  9. KANRENOL [Concomitant]
  10. DERMATRANS [Concomitant]
  11. ESKIM [Concomitant]
  12. TORVAST [Concomitant]
  13. TAVOR [Concomitant]

REACTIONS (1)
  - Hypokalaemia [Unknown]
